FAERS Safety Report 17364481 (Version 4)
Quarter: 2020Q1

REPORT INFORMATION
  Report Type: Report from Study
  Country: US (occurrence: US)
  Receive Date: 20200204
  Receipt Date: 20200331
  Transmission Date: 20200409
  Serious: Yes (Other)
  Sender: FDA-Public Use
  Company Number: US-PFIZER INC-2019537000

PATIENT
  Age: 69 Year
  Sex: Female

DRUGS (2)
  1. IBRANCE [Suspect]
     Active Substance: PALBOCICLIB
     Indication: BREAST CANCER METASTATIC
     Dosage: 125 MG, CYCLIC [DAILY FOR 21 DAYS OF A 28-DAY CYCLE](21 DAYS ON AND 7 DAYS OFF)
     Route: 048
     Dates: start: 20191210
  2. FASLODEX [Concomitant]
     Active Substance: FULVESTRANT
     Dosage: UNK
     Dates: start: 2019

REACTIONS (17)
  - Leukaemia [Unknown]
  - Dysgeusia [Recovered/Resolved]
  - Neoplasm progression [Unknown]
  - Heart rate decreased [Unknown]
  - Product dose omission [Unknown]
  - Second primary malignancy [Unknown]
  - Loss of consciousness [Unknown]
  - Decreased appetite [Not Recovered/Not Resolved]
  - Abdominal pain [Recovering/Resolving]
  - Anaemia [Unknown]
  - Blood calcium decreased [Unknown]
  - Parosmia [Recovered/Resolved]
  - Haemoglobin decreased [Unknown]
  - Abdominal distension [Recovering/Resolving]
  - Nausea [Recovered/Resolved]
  - Constipation [Unknown]
  - Fatigue [Not Recovered/Not Resolved]

NARRATIVE: CASE EVENT DATE: 202003
